FAERS Safety Report 5061623-2 (Version None)
Quarter: 2006Q3

REPORT INFORMATION
  Report Type: 
  Country: None (occurrence: None)
  Receive Date: 20060721
  Receipt Date: 20060705
  Transmission Date: 20061208
  Serious: Yes (Disabling)
  Sender: FDA-Public Use
  Company Number: US200604002215

PATIENT
  Age: 73 Year
  Sex: Male
  Weight: 83.4 kg

DRUGS (5)
  1. ALIMTA [Suspect]
     Indication: MESOTHELIOMA
     Dosage: 500 MG/M2, INTRAVENOUS
     Route: 042
     Dates: start: 20050914, end: 20051026
  2. CISPLATIN [Concomitant]
  3. CYANOCOBALAMIN [Concomitant]
  4. FOLIC ACID [Concomitant]
  5. CORTICOSTEROID NOS [Concomitant]

REACTIONS (4)
  - ACTIVITIES OF DAILY LIVING IMPAIRED [None]
  - ASTHENIA [None]
  - PERONEAL NERVE PALSY [None]
  - POLYNEUROPATHY [None]
